FAERS Safety Report 9027161 (Version 1)
Quarter: 2013Q1

REPORT INFORMATION
  Report Type: Spontaneous
  Country: US (occurrence: US)
  Receive Date: 20130123
  Receipt Date: 20130123
  Transmission Date: 20140127
  Serious: Yes (Other)
  Sender: FDA-Public Use
  Company Number: US-GLAXOSMITHKLINE-A1008705A

PATIENT
  Sex: Female

DRUGS (4)
  1. MAXAIR [Concomitant]
  2. LORATADINE [Concomitant]
  3. UNKNOWN [Concomitant]
  4. ADVAIR [Suspect]
     Indication: ASTHMA
     Dosage: 1PUFF PER DAY
     Route: 055

REACTIONS (17)
  - Urinary tract infection [Unknown]
  - Helicobacter infection [Recovered/Resolved]
  - Abdominal discomfort [Not Recovered/Not Resolved]
  - Flatulence [Not Recovered/Not Resolved]
  - Abdominal pain upper [Not Recovered/Not Resolved]
  - Dyspepsia [Not Recovered/Not Resolved]
  - Weight increased [Not Recovered/Not Resolved]
  - Nasopharyngitis [Unknown]
  - Bronchitis [Unknown]
  - Cough [Not Recovered/Not Resolved]
  - Vaginal discharge [Recovering/Resolving]
  - Eczema [Unknown]
  - Dysphonia [Unknown]
  - Gingival ulceration [Recovered/Resolved]
  - Weight loss poor [Not Recovered/Not Resolved]
  - Drug administration error [Not Recovered/Not Resolved]
  - Underdose [Not Recovered/Not Resolved]
